FAERS Safety Report 6881066-6 (Version None)
Quarter: 2010Q3

REPORT INFORMATION
  Report Type: 
  Country: None (occurrence: None)
  Receive Date: 20100727
  Receipt Date: 20100714
  Transmission Date: 20110219
  Serious: Yes (Hospitalization)
  Sender: FDA-Public Use
  Company Number: US-BIOGENIDEC-2010BI023591

PATIENT
  Age: 39 Year
  Sex: Female

DRUGS (2)
  1. AVONEX [Suspect]
     Indication: MULTIPLE SCLEROSIS
     Route: 030
     Dates: start: 20041004
  2. DESYREL [Concomitant]
     Dates: end: 20090101

REACTIONS (14)
  - ADVERSE DRUG REACTION [None]
  - ANXIETY [None]
  - CENTRAL NERVOUS SYSTEM LESION [None]
  - DEPRESSION [None]
  - FATIGUE [None]
  - FEAR [None]
  - FEMALE STERILISATION [None]
  - FIBROMYALGIA [None]
  - HALLUCINATION [None]
  - HYPOTHYROIDISM [None]
  - MALAISE [None]
  - OVERWEIGHT [None]
  - SELF ESTEEM DECREASED [None]
  - SUICIDE ATTEMPT [None]
